FAERS Safety Report 6915476-5 (Version None)
Quarter: 2010Q3

REPORT INFORMATION
  Report Type: 
  Country: None (occurrence: None)
  Receive Date: 20100809
  Receipt Date: 20100623
  Transmission Date: 20110219
  Serious: No
  Sender: FDA-Public Use
  Company Number: US-ABBOTT-10P-163-0654035-00

PATIENT
  Sex: Male

DRUGS (2)
  1. DEPAKOTE ER [Suspect]
     Indication: CONVULSION
     Dosage: DAILY DOSE: 2000MG
     Dates: start: 20070101
  2. KLONOPIN [Concomitant]
     Indication: SEASONAL ALLERGY
     Dosage: DAILY
     Dates: start: 20091101

REACTIONS (1)
  - ERECTILE DYSFUNCTION [None]
